FAERS Safety Report 14575856 (Version 3)
Quarter: 2018Q2

REPORT INFORMATION
  Report Type: Report from Study
  Country: AU (occurrence: AU)
  Receive Date: 20180227
  Receipt Date: 20180416
  Transmission Date: 20180711
  Serious: Yes (Death, Other)
  Sender: FDA-Public Use
  Company Number: AU-ROCHE-2075679

PATIENT
  Sex: Female
  Weight: 75 kg

DRUGS (1)
  1. TECENTRIQ [Suspect]
     Active Substance: ATEZOLIZUMAB
     Indication: NON-SMALL CELL LUNG CANCER
     Dosage: 2ND DOSE ON 12/JAN/2018
     Route: 042

REACTIONS (2)
  - Hepatotoxicity [Unknown]
  - Myocarditis [Fatal]
